FAERS Safety Report 17553504 (Version 1)
Quarter: 2020Q1

REPORT INFORMATION
  Report Type: Report from Study
  Country: GB (occurrence: GB)
  Receive Date: 20200317
  Receipt Date: 20200317
  Transmission Date: 20200409
  Serious: Yes (Other)
  Sender: FDA-Public Use
  Company Number: GB-JNJFOC-20200301175

PATIENT
  Sex: Male

DRUGS (3)
  1. STELARA [Suspect]
     Active Substance: USTEKINUMAB
     Indication: CROHN^S DISEASE
     Dosage: THE PATIENT HAD INFUSION ON 29-DEC-2019 (PREVIOUSLY REPORTED AS 31-DEC-2019).
     Route: 058
     Dates: start: 20191229
  2. CODEINE [Concomitant]
     Active Substance: CODEINE
  3. IRON [Concomitant]
     Active Substance: IRON
     Indication: PRODUCT USED FOR UNKNOWN INDICATION
     Route: 065

REACTIONS (3)
  - Crohn^s disease [Unknown]
  - Product dose omission [Unknown]
  - Gait disturbance [Unknown]
